FAERS Safety Report 13718630 (Version 1)
Quarter: 2017Q3

REPORT INFORMATION
  Report Type: Spontaneous
  Country: FR (occurrence: FR)
  Receive Date: 20170705
  Receipt Date: 20170705
  Transmission Date: 20171127
  Serious: Yes (Hospitalization)
  Sender: FDA-Public Use
  Company Number: FR-PFIZER INC-2017286909

PATIENT
  Age: 69 Year
  Sex: Male

DRUGS (7)
  1. NEURONTIN [Suspect]
     Active Substance: GABAPENTIN
  2. XATRAL [Suspect]
     Active Substance: ALFUZOSIN
  3. VENTOLIN [Concomitant]
     Active Substance: ALBUTEROL SULFATE
     Indication: ASTHMA
  4. SERETIDE [Concomitant]
     Active Substance: FLUTICASONE PROPIONATE\SALMETEROL XINAFOATE
     Indication: ASTHMA
  5. THEOSTAT [Concomitant]
     Active Substance: THEOPHYLLINE ANHYDROUS
     Indication: ASTHMA
  6. SOLUPRED [Concomitant]
     Active Substance: PREDNISOLONE
     Indication: ASTHMA
     Dosage: 60 MG, DAILY
  7. LANSOPRAZOLE MYLAN [Suspect]
     Active Substance: LANSOPRAZOLE

REACTIONS (1)
  - Agranulocytosis [Recovered/Resolved]

NARRATIVE: CASE EVENT DATE: 20170406
